FAERS Safety Report 12479457 (Version 1)
Quarter: 2016Q2

REPORT INFORMATION
  Report Type: Spontaneous
  Country: US (occurrence: None)
  Receive Date: 20160617
  Receipt Date: 20160617
  Transmission Date: 20160815
  Serious: Yes (Other)
  Sender: FDA-Public Use
  Company Number: None

PATIENT
  Age: 68 Year
  Sex: Male

DRUGS (8)
  1. SUTENT [Suspect]
     Active Substance: SUNITINIB MALATE
     Indication: RENAL CELL CARCINOMA
     Route: 048
     Dates: start: 20160523, end: 20160611
  2. MELATONIN [Concomitant]
     Active Substance: MELATONIN
  3. METAMUCIL POWDER [Concomitant]
  4. FLORAJEN 3 [Concomitant]
     Active Substance: PROBIOTICS NOS
  5. GLUCOSAMINE [Concomitant]
     Active Substance: GLUCOSAMINE
  6. MAGNESIUM [Concomitant]
     Active Substance: MAGNESIUM
  7. VITAMIN E [Concomitant]
     Active Substance: .ALPHA.-TOCOPHEROL
  8. VITAMIN B6 [Concomitant]
     Active Substance: PYRIDOXINE HYDROCHLORIDE

REACTIONS (2)
  - Rash pruritic [None]
  - Rash erythematous [None]

NARRATIVE: CASE EVENT DATE: 20160609
